FAERS Safety Report 9852383 (Version 2)
Quarter: 2014Q1

REPORT INFORMATION
  Report Type: Spontaneous
  Country: US (occurrence: US)
  Receive Date: 20140129
  Receipt Date: 20140129
  Transmission Date: 20141002
  Serious: No
  Sender: FDA-Public Use
  Company Number: US-BRACCO-009451

PATIENT
  Sex: 0

DRUGS (1)
  1. MULTIHANCE [Suspect]
     Indication: NUCLEAR MAGNETIC RESONANCE IMAGING
     Dates: start: 20130506, end: 20130506

REACTIONS (2)
  - Cough [Recovered/Resolved]
  - Wheezing [Recovered/Resolved]
